FAERS Safety Report 10207110 (Version 1)
Quarter: 2014Q2

REPORT INFORMATION
  Report Type: Spontaneous
  Country: US (occurrence: None)
  Receive Date: 20140528
  Receipt Date: 20140528
  Transmission Date: 20141212
  Serious: No
  Sender: FDA-Public Use
  Company Number: None

PATIENT
  Sex: Female
  Weight: 72.12 kg

DRUGS (1)
  1. EQUATE FIBER THERAPY [Suspect]
     Indication: GASTROINTESTINAL DISORDER
     Dosage: 100% PSYLLIUM, SERVING SIZE 5 CAPSULES, I HAVE TAKEN 2 PILLS DAILY WITH GENERALLY NOT MANY OVER + BAD EFFECTS??5 YRS AGO
     Route: 048

REACTIONS (2)
  - Muscle spasms [None]
  - Product quality issue [None]
